FAERS Safety Report 6277859-9 (Version None)
Quarter: 2009Q3

REPORT INFORMATION
  Report Type: 
  Country: None (occurrence: None)
  Receive Date: 20090717
  Receipt Date: 20090717
  Transmission Date: 20100115
  Serious: No
  Sender: FDA-Public Use
  Company Number: None

PATIENT
  Age: 57 Year
  Sex: Female
  Weight: 119.296 kg

DRUGS (1)
  1. CLARITHROMYCIN [Suspect]
     Indication: PHARYNGITIS STREPTOCOCCAL
     Dosage: 500MG. TWICE A DAY PO
     Route: 048
     Dates: start: 20090708, end: 20090715

REACTIONS (5)
  - ANXIETY [None]
  - DEPRESSION [None]
  - DYSGEUSIA [None]
  - OROPHARYNGEAL PAIN [None]
  - VISUAL ACUITY REDUCED [None]
